FAERS Safety Report 25215435 (Version 2)
Quarter: 2025Q3

REPORT INFORMATION
  Report Type: Spontaneous
  Country: US (occurrence: US)
  Receive Date: 20250418
  Receipt Date: 20250721
  Transmission Date: 20251021
  Serious: No
  Sender: Phathom Pharmaceuticals
  Company Number: US-PHATHOM PHARMACEUTICALS INC.-2025PHT00441

PATIENT
  Age: 56 Year
  Sex: Male
  Weight: 74.83 kg

DRUGS (1)
  1. VOQUEZNA [Suspect]
     Active Substance: VONOPRAZAN FUMARATE
     Indication: Barrett^s oesophagus
     Dosage: UNK, 1X/DAY
     Route: 048
     Dates: end: 20250307

REACTIONS (10)
  - Personality change [Unknown]
  - Euphoric mood [Unknown]
  - Hypophagia [Unknown]
  - Weight decreased [Unknown]
  - Pain [Unknown]
  - Anger [Unknown]
  - Aggression [Unknown]
  - Vitamin B12 decreased [Unknown]
  - Insomnia [Unknown]
  - Off label use [Recovered/Resolved]

NARRATIVE: CASE EVENT DATE: 20250101
